FAERS Safety Report 6300619-7 (Version None)
Quarter: 2009Q3

REPORT INFORMATION
  Report Type: 
  Country: None (occurrence: None)
  Receive Date: 20090806
  Receipt Date: 20090729
  Transmission Date: 20100115
  Serious: Yes (Hospitalization)
  Sender: FDA-Public Use
  Company Number: US-ABBOTT-09P-163-0588086-00

PATIENT
  Sex: Female
  Weight: 79.904 kg

DRUGS (2)
  1. DEPAKOTE ER [Suspect]
     Indication: MIGRAINE
     Route: 048
     Dates: start: 20070301
  2. CITALOPRAM [Concomitant]
     Indication: MIGRAINE

REACTIONS (9)
  - BLOOD PRESSURE INCREASED [None]
  - DIARRHOEA [None]
  - DYSPNOEA [None]
  - GASTROENTERITIS [None]
  - HEPATIC ENZYME INCREASED [None]
  - NAUSEA [None]
  - PALPITATIONS [None]
  - PANCREATITIS [None]
  - VOMITING [None]
